FAERS Safety Report 13979023 (Version 2)
Quarter: 2018Q3

REPORT INFORMATION
  Report Type: Spontaneous
  Country: US (occurrence: US)
  Receive Date: 20170914
  Receipt Date: 20180913
  Transmission Date: 20181010
  Serious: Yes (Other)
  Sender: FDA-Public Use
  Company Number: US-ASTELLAS-2017US006507

PATIENT
  Age: 65 Year
  Sex: Male

DRUGS (1)
  1. XTANDI [Suspect]
     Active Substance: ENZALUTAMIDE
     Indication: PROSTATE CANCER
     Route: 048
     Dates: start: 20161227

REACTIONS (11)
  - Prostatic specific antigen increased [Unknown]
  - Musculoskeletal chest pain [Unknown]
  - Peripheral swelling [Unknown]
  - Malignant neoplasm progression [Unknown]
  - Swelling [Unknown]
  - Fatigue [Unknown]
  - Peripheral swelling [Unknown]
  - Arthralgia [Unknown]
  - Nipple pain [Unknown]
  - Feeling hot [Unknown]
  - Back pain [Unknown]

NARRATIVE: CASE EVENT DATE: 201702
